FAERS Safety Report 4284387-9 (Version None)
Quarter: 2004Q1

REPORT INFORMATION
  Report Type: 
  Country: None (occurrence: None)
  Receive Date: 20040130
  Receipt Date: 20040130
  Transmission Date: 20041129
  Serious: Yes (Hospitalization)
  Sender: FDA-Public Use
  Company Number: None

PATIENT
  Age: 58 Year
  Sex: Male
  Weight: 111.5849 kg

DRUGS (7)
  1. SIMVASTATIN [Suspect]
     Indication: HYPERLIPIDAEMIA
     Dosage: 80 MG PO QD
     Route: 048
  2. FLUOXETINE [Concomitant]
  3. HYDROCHLOROTHIAZIDE [Concomitant]
  4. TERBINAFINE HCL [Concomitant]
  5. ZIPRASIDONE [Concomitant]
  6. ASPIRIN [Concomitant]
  7. BACLOFEN [Concomitant]

REACTIONS (7)
  - ALCOHOL USE [None]
  - ASTHENIA [None]
  - BLOOD CREATINE PHOSPHOKINASE INCREASED [None]
  - DRUG ABUSER [None]
  - LOSS OF CONSCIOUSNESS [None]
  - SUICIDE ATTEMPT [None]
  - VISION BLURRED [None]
